FAERS Safety Report 9767365 (Version 3)
Quarter: 2014Q1

REPORT INFORMATION
  Report Type: Report from Study
  Country: CA (occurrence: CA)
  Receive Date: 20131217
  Receipt Date: 20140325
  Transmission Date: 20141002
  Serious: Yes (Hospitalization, Other)
  Sender: FDA-Public Use
  Company Number: CA-ABBVIE-13P-028-1179273-00

PATIENT
  Sex: Male

DRUGS (1)
  1. HUMIRA [Suspect]
     Indication: PSORIASIS
     Dosage: RECEIVED 2 DOSES
     Route: 058
     Dates: start: 20130502, end: 20130509

REACTIONS (2)
  - Cardiac disorder [Recovered/Resolved]
  - Osteitis [Unknown]
